FAERS Safety Report 9765194 (Version 1)
Quarter: 2013Q4

REPORT INFORMATION
  Report Type: Spontaneous
  Country: BR (occurrence: BR)
  Receive Date: 20131217
  Receipt Date: 20131217
  Transmission Date: 20140711
  Serious: Yes (Other)
  Sender: FDA-Public Use
  Company Number: BR-SA-2013SA127913

PATIENT
  Age: 51 Year
  Sex: Female
  Weight: 72 kg

DRUGS (4)
  1. LANTUS SOLOSTAR [Suspect]
     Indication: TYPE 2 DIABETES MELLITUS
     Route: 058
     Dates: start: 2013
  2. TRAYENTA [Concomitant]
     Indication: TYPE 2 DIABETES MELLITUS
     Route: 048
  3. AZUKON [Concomitant]
     Indication: TYPE 2 DIABETES MELLITUS
     Route: 048
  4. SOLOSTAR [Concomitant]
     Indication: DEVICE THERAPY
     Dates: start: 2013

REACTIONS (2)
  - Surgery [Recovering/Resolving]
  - Blood glucose increased [Not Recovered/Not Resolved]
